FAERS Safety Report 25747451 (Version 2)
Quarter: 2025Q3

REPORT INFORMATION
  Report Type: Spontaneous
  Country: GB (occurrence: GB)
  Receive Date: 20250901
  Receipt Date: 20250908
  Transmission Date: 20251020
  Serious: Yes (Disabling)
  Sender: TAKEDA
  Company Number: None

PATIENT
  Sex: Male

DRUGS (1)
  1. VORTIOXETINE [Suspect]
     Active Substance: VORTIOXETINE
     Indication: Product used for unknown indication
     Dates: start: 20170101, end: 20221001

REACTIONS (3)
  - Sexual dysfunction [Not Recovered/Not Resolved]
  - Anhedonia [Not Recovered/Not Resolved]
  - Brain fog [Not Recovered/Not Resolved]

NARRATIVE: CASE EVENT DATE: 20221001
